FAERS Safety Report 7380937-4 (Version None)
Quarter: 2011Q1

REPORT INFORMATION
  Report Type: 
  Country: None (occurrence: None)
  Receive Date: 20110325
  Receipt Date: 20110325
  Transmission Date: 20110831
  Serious: Yes (Hospitalization)
  Sender: FDA-Public Use
  Company Number: None

PATIENT
  Age: 58 Year
  Sex: Female
  Weight: 53.6 kg

DRUGS (12)
  1. CA [Concomitant]
  2. LANOXIN [Concomitant]
  3. M.V.I. [Concomitant]
  4. FISH OIL [Concomitant]
  5. ADVAIR DISKUS 100/50 [Concomitant]
  6. PROAIR HFA [Concomitant]
  7. PLAVIX [Suspect]
     Indication: CORONARY ARTERY DISEASE
     Dosage: 75MG DAILY PO CHRONIC
     Route: 048
  8. ASPIRIN [Suspect]
     Indication: CORONARY ARTERY DISEASE
     Dosage: 81MG DAILY PO CHRONIC
     Route: 048
  9. ZANTAC [Concomitant]
  10. LIPITOR [Concomitant]
  11. LISINOPRIL [Concomitant]
  12. TOPROL-XL [Concomitant]

REACTIONS (4)
  - ARTERIOVENOUS MALFORMATION [None]
  - HAEMATOCRIT DECREASED [None]
  - HAEMOGLOBIN DECREASED [None]
  - DUODENAL ULCER HAEMORRHAGE [None]
